FAERS Safety Report 9990072 (Version 3)
Quarter: 2014Q2

REPORT INFORMATION
  Report Type: Spontaneous
  Country: US (occurrence: None)
  Receive Date: 20131118
  Receipt Date: 20140530
  Transmission Date: 20141212
  Serious: Yes (Other)
  Sender: FDA-Public Use
  Company Number: ADR-2013-01852

PATIENT
  Sex: Female

DRUGS (12)
  1. BACLOFEN [Suspect]
     Indication: PAIN
     Dates: start: 20060718
  2. HYDROMORPHONE [Suspect]
  3. BUPIVICAINE [Suspect]
     Dosage: 1.0 MG/ML AT DOSE 0.2704 MG/DAY
     Route: 037
  4. PERCOCET [Suspect]
     Dosage: 10/325 1 TABLET BY MOUTH FOUR TIMES/DAY
     Route: 048
  5. LUNESTA [Suspect]
  6. EFFEXOR [Suspect]
  7. SYNTHROID [Suspect]
  8. INVANZ [Suspect]
     Route: 042
  9. REMERON [Suspect]
  10. CALCIUM + D [Suspect]
  11. MIDODRINE [Suspect]
  12. ROBAXIN [Suspect]

REACTIONS (17)
  - Pain [None]
  - Wound [None]
  - Decreased activity [None]
  - Affective disorder [None]
  - Quality of life decreased [None]
  - Social problem [None]
  - Poor quality sleep [None]
  - Muscle spasms [None]
  - Dry mouth [None]
  - Constipation [None]
  - Decubitus ulcer [None]
  - Muscle atrophy [None]
  - Weight decreased [None]
  - Decreased interest [None]
  - Musculoskeletal pain [None]
  - Flank pain [None]
  - Impaired healing [None]
